FAERS Safety Report 16690048 (Version 1)
Quarter: 2019Q3

REPORT INFORMATION
  Report Type: Spontaneous
  Country: US (occurrence: US)
  Receive Date: 20190809
  Receipt Date: 20190809
  Transmission Date: 20191004
  Serious: No
  Sender: FDA-Public Use
  Company Number: US-PERRIGO-18US011975

PATIENT
  Age: 57 Year
  Sex: Female
  Weight: 96.15 kg

DRUGS (3)
  1. MOTRIN IB [Suspect]
     Active Substance: IBUPROFEN
     Indication: HEADACHE
     Dosage: 400 MG, SINGLE
     Route: 048
     Dates: start: 201810, end: 201810
  2. MOTRIN IB [Suspect]
     Active Substance: IBUPROFEN
     Indication: BONE PAIN
     Dosage: 400 TO 600 MG, 3 TO 4 TIMES DAILY
     Route: 048
     Dates: start: 20190128, end: 20190204
  3. MOTRIN IB [Suspect]
     Active Substance: IBUPROFEN
     Indication: ARTHRALGIA
     Dosage: 400 TO 600 MG, 3 TO 4 TIMES DAILY
     Route: 048
     Dates: start: 20190309, end: 20190506

REACTIONS (3)
  - Drug ineffective [Unknown]
  - Incorrect dose administered [Recovered/Resolved]
  - Incorrect product administration duration [Recovered/Resolved]

NARRATIVE: CASE EVENT DATE: 201810
